FAERS Safety Report 8129162-X (Version None)
Quarter: 2012Q1

REPORT INFORMATION
  Report Type: 
  Country: None (occurrence: None)
  Receive Date: 20120210
  Receipt Date: 20111026
  Transmission Date: 20120608
  Serious: No
  Sender: FDA-Public Use
  Company Number: US-BRISTOL-MYERS SQUIBB COMPANY-16197493

PATIENT
  Age: 61 Year
  Sex: Female
  Weight: 48 kg

DRUGS (6)
  1. ORENCIA [Suspect]
     Indication: RHEUMATOID ARTHRITIS
     Dosage: LAST DOSE 21OCT2011
     Route: 042
     Dates: start: 20110601
  2. LEXAPRO [Concomitant]
     Indication: RHEUMATOID ARTHRITIS
  3. ETODOLAC [Concomitant]
     Indication: PAIN
  4. VITAMIN B6 [Concomitant]
  5. CUPRIMINE [Concomitant]
     Indication: RHEUMATOID ARTHRITIS
  6. CALTRATE + D [Concomitant]

REACTIONS (1)
  - ALOPECIA [None]
